FAERS Safety Report 10301759 (Version 1)
Quarter: 2014Q3

REPORT INFORMATION
  Report Type: Spontaneous
  Country: US (occurrence: None)
  Receive Date: 20140709
  Receipt Date: 20140709
  Transmission Date: 20150326
  Serious: Yes (Other)
  Sender: FDA-Public Use
  Company Number: None

PATIENT
  Age: 79 Year
  Sex: Male

DRUGS (1)
  1. IMBRUVICA [Suspect]
     Active Substance: IBRUTINIB
     Indication: MANTLE CELL LYMPHOMA
     Dosage: 140 MG TAKE 3 DAILY DAILY ORAL
     Route: 048
     Dates: start: 20140114

REACTIONS (4)
  - Malaise [None]
  - Palpitations [None]
  - Nausea [None]
  - Rash [None]

NARRATIVE: CASE EVENT DATE: 20140708
